FAERS Safety Report 13391061 (Version 1)
Quarter: 2017Q1

REPORT INFORMATION
  Report Type: Spontaneous
  Country: US (occurrence: US)
  Receive Date: 20170331
  Receipt Date: 20170331
  Transmission Date: 20170429
  Serious: Yes (Other)
  Sender: FDA-Public Use
  Company Number: US-GLAXOSMITHKLINE-US2017GSK044797

PATIENT
  Age: 71 Year
  Sex: Male

DRUGS (2)
  1. CLONAZEPAM. [Suspect]
     Active Substance: CLONAZEPAM
     Indication: PRODUCT USED FOR UNKNOWN INDICATION
     Dosage: 120 MG, UNK
  2. BUPROPION. [Suspect]
     Active Substance: BUPROPION
     Indication: PRODUCT USED FOR UNKNOWN INDICATION
     Dosage: 90 TABLETS
     Route: 048

REACTIONS (12)
  - Toxicity to various agents [Unknown]
  - Somnolence [Unknown]
  - Electrocardiogram QRS complex prolonged [Unknown]
  - Aspiration [Unknown]
  - Bezoar [Unknown]
  - Respiratory failure [Unknown]
  - Overdose [Unknown]
  - Mediastinal disorder [Unknown]
  - Oesophageal obstruction [Unknown]
  - Electrocardiogram QT prolonged [Unknown]
  - Cardiovascular disorder [Unknown]
  - Hypotension [Unknown]
